FAERS Safety Report 23715123 (Version 1)
Quarter: 2024Q2

REPORT INFORMATION
  Report Type: Spontaneous
  Country: CN (occurrence: CN)
  Receive Date: 20240407
  Receipt Date: 20240407
  Transmission Date: 20240716
  Serious: Yes (Life-Threatening, Other)
  Sender: FDA-Public Use
  Company Number: CN-Jiangsu Hansoh Pharmaceutical Co., Ltd-2155313

PATIENT
  Age: 43 Year
  Sex: Male

DRUGS (3)
  1. GEMCITABINE HYDROCHLORIDE [Suspect]
     Active Substance: GEMCITABINE HYDROCHLORIDE
     Indication: Nonkeratinising carcinoma of nasopharynx
     Route: 041
     Dates: start: 20240220, end: 20240220
  2. CISPLATIN [Suspect]
     Active Substance: CISPLATIN
     Route: 041
     Dates: start: 20240220, end: 20240222
  3. CAMRELIZUMAB [Concomitant]
     Active Substance: CAMRELIZUMAB
     Route: 041
     Dates: start: 20240220, end: 20240220

REACTIONS (2)
  - Myelosuppression [Recovering/Resolving]
  - Off label use [Unknown]

NARRATIVE: CASE EVENT DATE: 20240220
